FAERS Safety Report 19513185 (Version 1)
Quarter: 2021Q3

REPORT INFORMATION
  Report Type: Spontaneous
  Country: GB (occurrence: GB)
  Receive Date: 20210709
  Receipt Date: 20210709
  Transmission Date: 20211014
  Serious: Yes (Other)
  Sender: FDA-Public Use
  Company Number: GB-ORGANON-O2107GBR000630

PATIENT
  Sex: Female

DRUGS (1)
  1. MOMETASONE FUROATE. [Suspect]
     Active Substance: MOMETASONE FUROATE
     Indication: SINUS DISORDER
     Dosage: 3 DF
     Route: 065

REACTIONS (5)
  - Diabetic retinopathy [Unknown]
  - Drug ineffective [Unknown]
  - Macular degeneration [Unknown]
  - Intentional product use issue [Unknown]
  - Cataract [Unknown]

NARRATIVE: CASE EVENT DATE: 2021
